FAERS Safety Report 8175251-3 (Version None)
Quarter: 2012Q1

REPORT INFORMATION
  Report Type: 
  Country: None (occurrence: None)
  Receive Date: 20120229
  Receipt Date: 20120224
  Transmission Date: 20120608
  Serious: Yes (Other)
  Sender: FDA-Public Use
  Company Number: US-PFIZER INC-2012050029

PATIENT
  Sex: Female

DRUGS (10)
  1. LIPITOR [Suspect]
     Indication: BLOOD CHOLESTEROL ABNORMAL
     Dosage: 80 MG, UNK
     Route: 048
  2. AMBIEN [Concomitant]
     Indication: SLEEP DISORDER
     Dosage: 10 MG, UNK
     Route: 048
  3. FISH OIL [Concomitant]
     Indication: CARDIAC DISORDER
     Dosage: 2 G, UNK
  4. PRISTIQ [Suspect]
     Indication: DEPRESSION
     Dosage: 100 MG, DAILY
     Route: 048
  5. TRAZODONE [Concomitant]
     Indication: SLEEP DISORDER
     Dosage: 50 MG, UNK
  6. VITAMIN D [Concomitant]
     Dosage: 2000 IU, UNK
  7. ACETYLSALICYLIC ACID [Concomitant]
     Indication: CARDIAC DISORDER
     Dosage: 80 MG, UNK
  8. LAMICTAL [Concomitant]
     Indication: DEPRESSION
     Dosage: UNK
  9. NIACIN [Concomitant]
     Indication: BLOOD CHOLESTEROL ABNORMAL
     Dosage: 1 G, UNK
  10. MULTI-VITAMINS [Concomitant]
     Dosage: UNK

REACTIONS (4)
  - MALAISE [None]
  - FEMORAL NERVE INJURY [None]
  - MUSCULAR WEAKNESS [None]
  - MYALGIA [None]
